FAERS Safety Report 18936041 (Version 2)
Quarter: 2021Q1

REPORT INFORMATION
  Report Type: Other
  Country: DE (occurrence: DE)
  Receive Date: 20210224
  Receipt Date: 20210315
  Transmission Date: 20210420
  Serious: No
  Sender: FDA-Public Use
  Company Number: DE-ROCHE-2692470

PATIENT
  Age: 33 Year
  Sex: Female
  Weight: 57 kg

DRUGS (13)
  1. RANITIDINE. [Concomitant]
     Active Substance: RANITIDINE
     Route: 048
     Dates: start: 20190311, end: 20190313
  2. OCRELIZUMAB. [Suspect]
     Active Substance: OCRELIZUMAB
     Route: 042
     Dates: start: 20190918
  3. PREDNISOLON [Concomitant]
     Active Substance: PREDNISOLONE
     Route: 042
     Dates: start: 20190226, end: 20190226
  4. TRIMIPRAMIN [Concomitant]
     Active Substance: TRIMIPRAMINE
     Dates: start: 201910
  5. OCRELIZUMAB. [Suspect]
     Active Substance: OCRELIZUMAB
     Indication: PRIMARY PROGRESSIVE MULTIPLE SCLEROSIS
     Route: 042
     Dates: start: 20190226, end: 20190312
  6. PREDNISOLON [Concomitant]
     Active Substance: PREDNISOLONE
     Route: 048
     Dates: start: 20190312, end: 20190312
  7. SERTRALIN [Concomitant]
     Active Substance: SERTRALINE HYDROCHLORIDE
     Indication: DEPRESSION
     Dates: start: 201910
  8. ACIC [Concomitant]
     Active Substance: ACYCLOVIR
     Indication: HERPES SIMPLEX
     Route: 048
     Dates: start: 20190911, end: 20190918
  9. ACIC [Concomitant]
     Active Substance: ACYCLOVIR
     Route: 048
     Dates: start: 20200226, end: 20200303
  10. AERIUS [Concomitant]
     Route: 048
     Dates: start: 20190225, end: 20190227
  11. DEKRISTOL [Concomitant]
     Active Substance: CHOLECALCIFEROL
     Indication: VITAMIN D DEFICIENCY
     Route: 048
     Dates: start: 20140912
  12. RANITIDINE. [Concomitant]
     Active Substance: RANITIDINE
     Route: 048
     Dates: start: 20190225, end: 20190227
  13. AERIUS [Concomitant]
     Route: 048
     Dates: start: 20190311, end: 20190313

REACTIONS (2)
  - COVID-19 [Unknown]
  - Oropharyngeal pain [Recovered/Resolved]

NARRATIVE: CASE EVENT DATE: 202009
